FAERS Safety Report 11001510 (Version 4)
Quarter: 2015Q3

REPORT INFORMATION
  Report Type: Spontaneous
  Country: US (occurrence: US)
  Receive Date: 20150408
  Receipt Date: 20150723
  Transmission Date: 20151125
  Serious: Yes (Other)
  Sender: FDA-Public Use
  Company Number: US-GILEAD-2015-0146346

PATIENT
  Age: 63 Year
  Sex: Male

DRUGS (11)
  1. VITAMIN D3 [Concomitant]
     Active Substance: CHOLECALCIFEROL
  2. HARVONI [Suspect]
     Active Substance: LEDIPASVIR\SOFOSBUVIR
     Indication: HEPATITIS C
     Dosage: UNK
     Route: 065
     Dates: start: 20150107, end: 20150304
  3. OREGANO OIL [Concomitant]
  4. VITAMIN C [Concomitant]
     Active Substance: ASCORBIC ACID
  5. INOSITOL HEXANICOTINATE [Concomitant]
  6. MAGNESIUM [Concomitant]
     Active Substance: MAGNESIUM
  7. OX BILE EXTRACT [Concomitant]
     Active Substance: BOS TAURUS BILE
  8. VITAMIN E [Concomitant]
     Active Substance: .ALPHA.-TOCOPHEROL
  9. ZINC BALANCE [Concomitant]
  10. SELENIUM [Concomitant]
     Active Substance: SELENIUM
  11. VITAMIN B COMPLEX [Concomitant]
     Active Substance: CYANOCOBALAMIN\DEXPANTHENOL\NIACINAMIDE\PYRIDOXINE HYDROCHLORIDE\RIBOFLAVIN 5^-PHOSPHATE SODIUM\THIAMINE HYDROCHLORIDE\VITAMIN B COMPLEX

REACTIONS (3)
  - Hepatitis C [Not Recovered/Not Resolved]
  - Drug ineffective [Not Recovered/Not Resolved]
  - Hepatitis C virus test positive [Not Recovered/Not Resolved]

NARRATIVE: CASE EVENT DATE: 20150304
